FAERS Safety Report 11170234 (Version 2)
Quarter: 2015Q2

REPORT INFORMATION
  Report Type: Spontaneous
  Country: US (occurrence: US)
  Receive Date: 20150608
  Receipt Date: 20150625
  Transmission Date: 20150821
  Serious: Yes (Other)
  Sender: FDA-Public Use
  Company Number: US-BEH-2015051550

PATIENT
  Sex: Female
  Weight: 52 kg

DRUGS (18)
  1. ALLOPURINOL. [Concomitant]
     Active Substance: ALLOPURINOL
     Route: 048
  2. CELEBREX [Concomitant]
     Active Substance: CELECOXIB
     Dosage: 1 (200 MG) CAPSULE DAILY
     Route: 048
  3. LEVOTHYROXINE SODIUM. [Concomitant]
     Active Substance: LEVOTHYROXINE SODIUM
     Route: 048
  4. LIDOCAINE. [Concomitant]
     Active Substance: LIDOCAINE
     Dosage: 4%
  5. EPIPEN [Concomitant]
     Active Substance: EPINEPHRINE
     Dosage: AUTO-INJECTOR
  6. CITRUCEL [Concomitant]
     Active Substance: METHYLCELLULOSE (4000 MPA.S)
     Dosage: 1 DOSE (500 MG) AS DIRECTED
     Route: 048
  7. VENLAFAXINE [Concomitant]
     Active Substance: VENLAFAXINE HYDROCHLORIDE
     Dosage: 150 MG HS
     Route: 048
  8. VITAMIN B [Concomitant]
     Active Substance: VITAMIN B
     Dosage: 1000 MCG QM
     Route: 058
  9. LOVENOX [Concomitant]
     Active Substance: ENOXAPARIN SODIUM
     Dosage: 1 DOSE TWICE DAILY (40 MG/0.4 ML SYRINGE)
     Route: 058
  10. FLUTICASONE PROPIONATE. [Concomitant]
     Active Substance: FLUTICASONE PROPIONATE
     Dosage: 1 DOSE AS DIRECTED
  11. ANTIHISTAMINES [Concomitant]
     Active Substance: ANTIHISTAMINES NOS
     Dosage: 0.025% DROPS IGTT BIDP, 1 DOSE BOTHEYES
  12. PHENERGAN [Concomitant]
     Active Substance: PROMETHAZINE HYDROCHLORIDE
     Dosage: 12.5 MG Q4HP
     Route: 048
  13. DIPHENHYDRAMINE [Concomitant]
     Active Substance: DIPHENHYDRAMINE
     Indication: ANAPHYLACTIC REACTION
  14. VITAMIN D2 50000 [Concomitant]
     Dosage: 1 CAP EVERY FRIDAY (500000 UNITS)
     Route: 048
  15. SUCRALFATE. [Concomitant]
     Active Substance: SUCRALFATE
     Dosage: 1 G QID
     Route: 048
  16. POTASSIUM CHLORIDE. [Concomitant]
     Active Substance: POTASSIUM CHLORIDE
     Route: 048
  17. HIZENTRA [Suspect]
     Active Substance: HUMAN IMMUNOGLOBULIN G
     Indication: IMMUNODEFICIENCY COMMON VARIABLE
     Route: 058
  18. ACETAMINOPHEN. [Concomitant]
     Active Substance: ACETAMINOPHEN
     Dosage: AS DIRECTED
     Route: 048

REACTIONS (1)
  - Non-Hodgkin^s lymphoma [Unknown]
